FAERS Safety Report 15306139 (Version 7)
Quarter: 2021Q4

REPORT INFORMATION
  Report Type: Spontaneous
  Country: US (occurrence: US)
  Receive Date: 20180822
  Receipt Date: 20211104
  Transmission Date: 20220303
  Serious: No
  Sender: FDA-Public Use
  Company Number: US-PFIZER INC-2018335040

PATIENT
  Age: 10 Year
  Sex: Male
  Weight: 32.653 kg

DRUGS (6)
  1. GENOTROPIN [Suspect]
     Active Substance: SOMATROPIN
     Indication: Growth retardation
     Dosage: 1.6 MG, ALTERNATE DAY
     Route: 058
  2. GENOTROPIN [Suspect]
     Active Substance: SOMATROPIN
     Dosage: 1.4 MG, ALTERNATE DAY
     Route: 058
  3. GENOTROPIN [Suspect]
     Active Substance: SOMATROPIN
     Dosage: 1.2 MG, 1X/DAY (EVERY NIGHT)
     Route: 058
     Dates: start: 201804
  4. GENOTROPIN [Suspect]
     Active Substance: SOMATROPIN
     Dosage: 1.2 MG, 1X/DAY (EVERY NIGHT)
     Route: 058
     Dates: start: 201804
  5. GENOTROPIN [Suspect]
     Active Substance: SOMATROPIN
     Dosage: 0.8 MG, DAILY
     Dates: start: 20180428
  6. GENOTROPIN [Suspect]
     Active Substance: SOMATROPIN
     Dosage: 0.72 MG, DAILY

REACTIONS (9)
  - Blood growth hormone increased [Unknown]
  - Insulin-like growth factor increased [Recovered/Resolved]
  - Pain in extremity [Recovered/Resolved]
  - Arthralgia [Recovered/Resolved]
  - Insomnia [Unknown]
  - Foot deformity [Unknown]
  - Wrong technique in device usage process [Unknown]
  - Product prescribing error [Unknown]
  - Product dose omission issue [Unknown]

NARRATIVE: CASE EVENT DATE: 20210101
